FAERS Safety Report 13307230 (Version 1)
Quarter: 2017Q1

REPORT INFORMATION
  Report Type: Spontaneous
  Country: RS (occurrence: RS)
  Receive Date: 20170308
  Receipt Date: 20170308
  Transmission Date: 20170428
  Serious: Yes (Hospitalization)
  Sender: FDA-Public Use
  Company Number: RS-WARNER CHILCOTT-2017-000229

PATIENT
  Age: 30 Year
  Sex: Female

DRUGS (1)
  1. MESALAZINE [Suspect]
     Active Substance: MESALAMINE
     Indication: COLITIS ULCERATIVE
     Dosage: 3 G DAILY
     Route: 065

REACTIONS (3)
  - Pregnancy [Unknown]
  - Colitis ulcerative [Recovering/Resolving]
  - Treatment noncompliance [Unknown]
